FAERS Safety Report 8075464-5 (Version None)
Quarter: 2012Q1

REPORT INFORMATION
  Report Type: 
  Country: None (occurrence: None)
  Receive Date: 20120127
  Receipt Date: 20120123
  Transmission Date: 20120608
  Serious: Yes (Hospitalization)
  Sender: FDA-Public Use
  Company Number: FR-PFIZER INC-2009235721

PATIENT
  Age: 69 Year
  Sex: Male

DRUGS (2)
  1. PLACEBO [Suspect]
     Indication: PROSTATE CANCER
     Dosage: UNK
     Route: 048
     Dates: start: 20081217, end: 20090310
  2. PREDNISONE TAB [Suspect]
     Indication: PROSTATE CANCER
     Dosage: 5 MG, 2X/DAY
     Route: 048
     Dates: start: 20081217, end: 20090310

REACTIONS (1)
  - GENERAL PHYSICAL HEALTH DETERIORATION [None]
